FAERS Safety Report 24217066 (Version 1)
Quarter: 2024Q3

REPORT INFORMATION
  Report Type: Spontaneous
  Country: US (occurrence: None)
  Receive Date: 20240815
  Receipt Date: 20240815
  Transmission Date: 20241017
  Serious: Yes (Death)
  Sender: Public
  Company Number: None

PATIENT
  Age: 56 Year
  Sex: Male

DRUGS (1)
  1. OCTREOTIDE ACETATE [Suspect]
     Active Substance: OCTREOTIDE ACETATE
     Indication: Orthostatic hypotension
     Dosage: OTHER STRENGTH : 100MCG/ML;?OTHER FREQUENCY : EVERY 8 HOURS;?

REACTIONS (1)
  - Death [None]
